FAERS Safety Report 6313751-9 (Version None)
Quarter: 2009Q3

REPORT INFORMATION
  Report Type: 
  Country: None (occurrence: None)
  Receive Date: 20090818
  Receipt Date: 20080729
  Transmission Date: 20100115
  Serious: No
  Sender: FDA-Public Use
  Company Number: US-BRISTOL-MYERS SQUIBB COMPANY-14282461

PATIENT
  Age: 40 Year
  Sex: Male
  Weight: 66 kg

DRUGS (6)
  1. REYATAZ [Suspect]
     Indication: HIV INFECTION
     Dates: end: 20080725
  2. ZERIT [Suspect]
     Indication: HIV INFECTION
  3. NORVIR [Suspect]
     Indication: HIV INFECTION
     Dosage: DOSAGE FORM =1 TABLET
     Dates: end: 20080725
  4. TRUVADA [Suspect]
     Indication: HIV INFECTION
     Dosage: 1 DOSAGE FORM= 1 TABLET
     Dates: end: 20080725
  5. CRIXIVAN [Suspect]
     Indication: HIV INFECTION
  6. VIRAMUNE [Suspect]
     Indication: HIV INFECTION

REACTIONS (4)
  - JAUNDICE [None]
  - LIPODYSTROPHY ACQUIRED [None]
  - NAUSEA [None]
  - VOMITING [None]
